FAERS Safety Report 10092775 (Version 1)
Quarter: 2014Q2

REPORT INFORMATION
  Report Type: Spontaneous
  Country: US (occurrence: US)
  Receive Date: 20140421
  Receipt Date: 20140421
  Transmission Date: 20141212
  Serious: No
  Sender: FDA-Public Use
  Company Number: US-SANOFI-AVENTIS-2013SA046739

PATIENT
  Age: 82 Year
  Sex: Female

DRUGS (2)
  1. ALLEGRA [Suspect]
     Indication: HYPERSENSITIVITY
     Route: 065
     Dates: start: 201305
  2. WARFARIN [Concomitant]

REACTIONS (3)
  - Nervousness [Unknown]
  - Headache [Unknown]
  - Heart rate increased [Unknown]
